FAERS Safety Report 21581104 (Version 1)
Quarter: 2022Q4

REPORT INFORMATION
  Report Type: Report from Study
  Country: US (occurrence: None)
  Receive Date: 20221111
  Receipt Date: 20221111
  Transmission Date: 20230113
  Serious: No
  Sender: FDA-Public Use
  Company Number: US-ABBVIE-22K-163-4345010-00

PATIENT
  Sex: Female

DRUGS (4)
  1. HUMIRA [Suspect]
     Active Substance: ADALIMUMAB
     Indication: Crohn^s disease
     Dosage: DAY 1
     Route: 058
     Dates: start: 2021, end: 2021
  2. HUMIRA [Suspect]
     Active Substance: ADALIMUMAB
     Dosage: DAY 15
     Route: 058
     Dates: start: 2021, end: 2021
  3. HUMIRA [Suspect]
     Active Substance: ADALIMUMAB
     Dosage: STRENGTH- 40 MG   DAY 29   END DATE- 2021
     Route: 058
     Dates: start: 20211111
  4. HUMIRA [Suspect]
     Active Substance: ADALIMUMAB
     Dosage: STRENGTH- 40 MG
     Route: 058
     Dates: start: 202112

REACTIONS (22)
  - Crohn^s disease [Unknown]
  - Respiratory disorder [Unknown]
  - Gastrointestinal sounds abnormal [Unknown]
  - Gastric disorder [Unknown]
  - Asthenia [Unknown]
  - Loss of personal independence in daily activities [Unknown]
  - Asthma [Unknown]
  - Fear [Unknown]
  - Migraine [Unknown]
  - Respiratory tract congestion [Unknown]
  - Insomnia [Unknown]
  - Abdominal distension [Unknown]
  - Cough [Unknown]
  - Flatulence [Unknown]
  - Anxiety [Unknown]
  - Depressed mood [Unknown]
  - Hypersensitivity [Unknown]
  - Clostridium difficile infection [Unknown]
  - Nausea [Unknown]
  - Arthralgia [Unknown]
  - Eating disorder [Unknown]
  - Vomiting [Unknown]

NARRATIVE: CASE EVENT DATE: 20220101
